FAERS Safety Report 6747677-3 (Version None)
Quarter: 2010Q2

REPORT INFORMATION
  Report Type: 
  Country: None (occurrence: None)
  Receive Date: 20100528
  Receipt Date: 20100517
  Transmission Date: 20101027
  Serious: Yes (Other)
  Sender: FDA-Public Use
  Company Number: DE-ELI_LILLY_AND_COMPANY-DE201004005389

PATIENT
  Sex: Male

DRUGS (11)
  1. ZYPREXA [Suspect]
     Indication: PSYCHOTIC DISORDER
     Dosage: 15 MG, UNK
     Dates: start: 20040614, end: 20040701
  2. ZYPREXA [Suspect]
     Dosage: 12.5 MG, UNK
     Dates: start: 20040701, end: 20040901
  3. ZYPREXA [Suspect]
     Dosage: 10 MG, UNK
     Dates: start: 20040901, end: 20041201
  4. ZYPREXA [Suspect]
     Dosage: 7.5 MG, UNK
     Dates: start: 20041201, end: 20051201
  5. ZYPREXA [Suspect]
     Dosage: 5 MG, UNK
     Dates: start: 20051201
  6. GASTROSIL [Concomitant]
     Dosage: UNK, UNK
     Dates: start: 20040414
  7. LORAZEPAM [Concomitant]
     Dates: start: 20040527
  8. DOXEPIN HCL [Concomitant]
     Dates: start: 20040527
  9. RAMIPRIL [Concomitant]
     Dosage: 0.5 D/F, DAILY (1/D)
     Dates: start: 20080520
  10. RAMIPRIL [Concomitant]
     Dosage: 1 D/F, DAILY (1/D)
  11. ABILIFY [Concomitant]
     Dosage: 5 MG, DAILY (1/D)
     Dates: start: 20080301, end: 20080701

REACTIONS (7)
  - BLOOD CHOLESTEROL INCREASED [None]
  - BLOOD URIC ACID INCREASED [None]
  - BREAST CANCER [None]
  - BREAST PAIN [None]
  - GYNAECOMASTIA [None]
  - PSYCHOTIC DISORDER [None]
  - WEIGHT INCREASED [None]
